FAERS Safety Report 22588005 (Version 1)
Quarter: 2023Q2

REPORT INFORMATION
  Report Type: Spontaneous
  Country: FR (occurrence: FR)
  Receive Date: 20230612
  Receipt Date: 20230612
  Transmission Date: 20230722
  Serious: Yes (Hospitalization)
  Sender: FDA-Public Use
  Company Number: None

PATIENT
  Age: 93 Year
  Sex: Female
  Weight: 42 kg

DRUGS (7)
  1. PRADAXA [Suspect]
     Active Substance: DABIGATRAN ETEXILATE MESYLATE
     Indication: Atrial fibrillation
     Dosage: 1 DOSAGE FORM, LONG-TERM
     Route: 048
     Dates: end: 20230529
  2. FUROSEMIDE [Suspect]
     Active Substance: FUROSEMIDE
     Indication: Oedema due to cardiac disease
     Dosage: 2 TABLETS A DAY, LONG-TERM
     Route: 048
  3. ALTHIAZIDE [Suspect]
     Active Substance: ALTHIAZIDE
     Indication: Oedema due to cardiac disease
     Dosage: LONG-TERM
     Route: 048
     Dates: end: 20230528
  4. SPIRONOLACTONE [Suspect]
     Active Substance: SPIRONOLACTONE
     Indication: Oedema due to cardiac disease
     Dosage: LONG-TERM
     Route: 048
     Dates: end: 20230528
  5. ZYMAD 80 000 UI, drinkable solution in ampoule [Concomitant]
     Indication: Product used for unknown indication
     Dosage: 1 DOSAGE FORM, LONG TERM
  6. DAFALGAN 500 mg, tablet [Concomitant]
     Indication: Product used for unknown indication
     Dosage: 1 DOSAGE FORM, LONG TERM
  7. PRAVASTATIN SODIUM [Concomitant]
     Active Substance: PRAVASTATIN SODIUM
     Indication: Product used for unknown indication
     Dosage: LONG TERM
     Route: 048

REACTIONS (2)
  - Hyponatraemia [Recovering/Resolving]
  - Haematoma [Recovering/Resolving]

NARRATIVE: CASE EVENT DATE: 20230528
